FAERS Safety Report 5799992-8 (Version None)
Quarter: 2008Q3

REPORT INFORMATION
  Report Type: 
  Country: None (occurrence: None)
  Receive Date: 20080701
  Receipt Date: 20080616
  Transmission Date: 20090109
  Serious: Yes (Other)
  Sender: FDA-Public Use
  Company Number: 2008BI003478

PATIENT
  Age: 58 Year
  Sex: Female
  Weight: 94.8018 kg

DRUGS (27)
  1. AVONEX [Suspect]
     Indication: MULTIPLE SCLEROSIS
     Dosage: 30 UG QW IM
     Route: 030
     Dates: start: 19970101
  2. BUTALBITAL [Concomitant]
  3. SERTRALINE [Concomitant]
  4. PREMARIN [Concomitant]
  5. ZOCOR [Concomitant]
  6. RYNATAN [Concomitant]
  7. RHINOCORT [Concomitant]
  8. DEXAMETHASONE [Concomitant]
  9. BENZONATATE [Concomitant]
  10. DIFLUCAN [Concomitant]
  11. NIZORAL [Concomitant]
  12. TERBINAFINE HCL [Concomitant]
  13. TERBUTALINE SULFATE [Concomitant]
  14. A/B OPTIC DROPS [Concomitant]
  15. NITROFURANTOIN [Concomitant]
  16. PHENOBARBITAL TAB [Concomitant]
  17. LUSONEX [Concomitant]
  18. DYNEX XR [Concomitant]
  19. DOVONEX [Concomitant]
  20. DARVOCET [Concomitant]
  21. CALCIUM [Concomitant]
  22. VITAMIN E [Concomitant]
  23. CENTRUM SILVER [Concomitant]
  24. ALLERGY MEDICATIONS [Concomitant]
  25. MUCINEX [Concomitant]
  26. VITAMIN B-12 [Concomitant]
  27. MICROLOZENGES [Concomitant]

REACTIONS (10)
  - ARTHRALGIA [None]
  - ARTHRITIS [None]
  - BLOOD CHOLESTEROL INCREASED [None]
  - BLOOD TRIGLYCERIDES INCREASED [None]
  - BLOOD URIC ACID INCREASED [None]
  - CHRONIC LYMPHOCYTIC LEUKAEMIA [None]
  - COGNITIVE DISORDER [None]
  - HEADACHE [None]
  - SLEEP APNOEA SYNDROME [None]
  - WEIGHT INCREASED [None]
